FAERS Safety Report 7008738-7 (Version None)
Quarter: 2010Q3

REPORT INFORMATION
  Report Type: 
  Country: None (occurrence: None)
  Receive Date: 20100921
  Receipt Date: 20100914
  Transmission Date: 20110219
  Serious: Yes (Other)
  Sender: FDA-Public Use
  Company Number: 2010SP048996

PATIENT
  Age: 2 Year

DRUGS (1)
  1. DESLORATADINE [Suspect]
     Indication: URTICARIA
     Dosage: .5 ML;QD;
     Dates: start: 20100911, end: 20100912

REACTIONS (2)
  - HALLUCINATION, VISUAL [None]
  - MYDRIASIS [None]
